FAERS Safety Report 10714629 (Version 1)
Quarter: 2015Q1

REPORT INFORMATION
  Report Type: Report from Study
  Country: FR (occurrence: FR)
  Receive Date: 20150115
  Receipt Date: 20150115
  Transmission Date: 20150721
  Serious: Yes (Hospitalization)
  Sender: FDA-Public Use
  Company Number: FR-BAYER-2014-175111

PATIENT
  Age: 78 Year
  Sex: Male
  Weight: 82 kg

DRUGS (9)
  1. GLUCOPHAGE [Concomitant]
     Active Substance: METFORMIN HYDROCHLORIDE
     Indication: DIABETES MELLITUS
     Dosage: 2 G DAILY
     Dates: start: 2002
  2. REGORAFENIB [Suspect]
     Active Substance: REGORAFENIB
     Indication: SOFT TISSUE SARCOMA
  3. NOVONORM [Concomitant]
     Active Substance: REPAGLINIDE
     Indication: DIABETES MELLITUS
     Dosage: 5 MG DAILY
     Dates: start: 2002
  4. HYPERIUM [Concomitant]
     Active Substance: RILMENIDINE PHOSPHATE
     Indication: HYPERTENSION
     Dosage: 2 MG DAILY
     Dates: start: 2008
  5. EZETROL [Concomitant]
     Active Substance: EZETIMIBE
     Dosage: 10 MG DAILY
     Dates: start: 2008
  6. AMOXICILLINE [Concomitant]
     Active Substance: AMOXICILLIN
     Indication: LUNG DISORDER
     Dosage: UNK
     Dates: start: 20140616
  7. REGORAFENIB [Suspect]
     Active Substance: REGORAFENIB
     Indication: SARCOMA METASTATIC
     Dosage: 120 MG, QD
     Route: 048
     Dates: start: 20140404, end: 20140622
  8. KARDEGIC [Concomitant]
     Active Substance: ASPIRIN LYSINE
     Dosage: 75 MG DAILY
     Dates: start: 2008
  9. ALOPURINOL [Concomitant]
     Active Substance: ALLOPURINOL
     Dosage: 200 MG DAILY
     Dates: start: 1994

REACTIONS (1)
  - Cardiac failure [Recovered/Resolved]

NARRATIVE: CASE EVENT DATE: 20140624
